FAERS Safety Report 9804311 (Version 3)
Quarter: 2014Q2

REPORT INFORMATION
  Report Type: Spontaneous
  Country: US (occurrence: US)
  Receive Date: 20140108
  Receipt Date: 20140417
  Transmission Date: 20141212
  Serious: Yes (Death)
  Sender: FDA-Public Use
  Company Number: US-BRISTOL-MYERS SQUIBB COMPANY-19965201

PATIENT
  Age: 71 Year
  Sex: Male

DRUGS (30)
  1. BYETTA [Suspect]
     Indication: DIABETES MELLITUS
     Dosage: LAST DOSE ON 12JUL09
     Route: 058
     Dates: start: 20060913, end: 20090712
  2. GLIPIZIDE [Concomitant]
     Indication: DIABETES MELLITUS
     Route: 048
  3. METFORMIN [Concomitant]
     Indication: DIABETES MELLITUS
     Route: 048
  4. LIPITOR [Concomitant]
     Indication: BLOOD CHOLESTEROL
     Route: 048
  5. AVAPRO [Concomitant]
     Indication: BLOOD PRESSURE
     Route: 048
  6. ATENOLOL [Concomitant]
     Indication: BLOOD PRESSURE
     Route: 048
  7. PLAVIX [Concomitant]
     Route: 048
  8. LANTUS [Concomitant]
  9. PRAZOSIN [Concomitant]
     Indication: BLOOD PRESSURE
     Route: 048
  10. ASPIRIN [Concomitant]
     Route: 048
     Dates: start: 20070906
  11. CARTIA [Concomitant]
     Route: 048
  12. TYLENOL [Concomitant]
     Dosage: 1DF: 2 TABS
  13. BENZONATATE [Concomitant]
  14. VITAMIN B12 [Concomitant]
  15. LOVENOX [Concomitant]
  16. NEURONTIN [Concomitant]
  17. CORTEF [Concomitant]
  18. IMDUR [Concomitant]
  19. XOPENEX [Concomitant]
  20. ZYVOX [Concomitant]
  21. ZESTRIL [Concomitant]
  22. MEGACE [Concomitant]
  23. TOPROL [Concomitant]
  24. SINGULAIR [Concomitant]
  25. MULTIVITAMIN [Concomitant]
  26. OMEGA 3 FATTY ACID [Concomitant]
  27. POTASSIUM [Concomitant]
  28. RANITIDINE [Concomitant]
  29. ZOCOR [Concomitant]
  30. ZOSYN [Concomitant]

REACTIONS (1)
  - Pancreatic carcinoma metastatic [Fatal]
